FAERS Safety Report 12415928 (Version 1)
Quarter: 2016Q2

REPORT INFORMATION
  Report Type: Spontaneous
  Country: US (occurrence: US)
  Receive Date: 20160530
  Receipt Date: 20160530
  Transmission Date: 20160815
  Serious: Yes (Other)
  Sender: FDA-Public Use
  Company Number: US-PFIZER INC-2016267203

PATIENT
  Age: 56 Year
  Sex: Female

DRUGS (2)
  1. IBRANCE [Suspect]
     Active Substance: PALBOCICLIB
     Indication: BREAST CANCER
     Dosage: 125 MG, CYCLIC (DAILY X 21 DAYS OFF 7)
     Route: 048
     Dates: start: 20160311
  2. AROMASIN [Concomitant]
     Active Substance: EXEMESTANE
     Dosage: UNK

REACTIONS (1)
  - Haemorrhage [Unknown]
